FAERS Safety Report 13855606 (Version 2)
Quarter: 2017Q4

REPORT INFORMATION
  Report Type: Spontaneous
  Country: US (occurrence: US)
  Receive Date: 20170810
  Receipt Date: 20171207
  Transmission Date: 20180320
  Serious: No
  Sender: FDA-Public Use
  Company Number: US-VIFOR (INTERNATIONAL) INC.-VIT-2017-05067

PATIENT
  Sex: Female

DRUGS (1)
  1. VELTASSA [Suspect]
     Active Substance: PATIROMER
     Indication: HYPERKALAEMIA
     Route: 048
     Dates: start: 201705

REACTIONS (8)
  - Product preparation error [Unknown]
  - Product physical issue [Unknown]
  - Diarrhoea [Unknown]
  - Drug dose omission [Not Recovered/Not Resolved]
  - Drug administration error [Unknown]
  - Laceration [Not Recovered/Not Resolved]
  - Accident [Not Recovered/Not Resolved]
  - Product taste abnormal [Unknown]

NARRATIVE: CASE EVENT DATE: 2017
